FAERS Safety Report 13358308 (Version 1)
Quarter: 2017Q1

REPORT INFORMATION
  Report Type: Spontaneous
  Country: US (occurrence: US)
  Receive Date: 20170321
  Receipt Date: 20170321
  Transmission Date: 20170429
  Serious: No
  Sender: FDA-Public Use
  Company Number: None

PATIENT
  Age: 46 Year
  Sex: Female
  Weight: 76.5 kg

DRUGS (3)
  1. ANIMAL ALLERGENS, DOG EPITHELIA, CANIS FAMILIARIS [Suspect]
     Active Substance: CANIS LUPUS FAMILIARIS SKIN
     Dosage: ?          OTHER FREQUENCY:1:10,000 DILUTION;?
     Route: 058
  2. MITE/MOLD/WEED ALLERGY EXTRACT [Concomitant]
  3. STANDARDIZED CAT HAIR [Suspect]
     Active Substance: FELIS CATUS HAIR
     Indication: RHINITIS ALLERGIC
     Dosage: ?          OTHER FREQUENCY:1:10,000 DILUTION;?
     Route: 058
     Dates: start: 20170313, end: 20170320

REACTIONS (4)
  - Pruritus [None]
  - Dizziness [None]
  - Dyspnoea [None]
  - Vomiting [None]

NARRATIVE: CASE EVENT DATE: 20170320
